FAERS Safety Report 4352358-X (Version None)
Quarter: 2004Q2

REPORT INFORMATION
  Report Type: 
  Country: None (occurrence: None)
  Receive Date: 20040428
  Receipt Date: 20040404
  Transmission Date: 20050107
  Serious: Yes (Hospitalization)
  Sender: FDA-Public Use
  Company Number: DK-JNJFOC-20040405479

PATIENT
  Age: 1 Day
  Sex: Male
  Weight: 3.7 kg

DRUGS (2)
  1. RISPERDAL [Suspect]
     Dosage: 0.25 MG, IN 1 DAY, INTRAUTERINE
     Route: 015
  2. ZOLOFT [Suspect]
     Dosage: 150 MG, 1 IN 24 HOUR, INTRAUTERINE
     Route: 015

REACTIONS (4)
  - COMPLICATIONS OF MATERNAL EXPOSURE TO THERAPEUTIC DRUGS [None]
  - DRUG WITHDRAWAL SYNDROME NEONATAL [None]
  - MATERNAL DRUGS AFFECTING FOETUS [None]
  - PREGNANCY [None]
